FAERS Safety Report 24679605 (Version 1)
Quarter: 2024Q4

REPORT INFORMATION
  Report Type: Spontaneous
  Country: US (occurrence: US)
  Receive Date: 20241129
  Receipt Date: 20241129
  Transmission Date: 20250114
  Serious: Yes (Other)
  Sender: NOVARTIS
  Company Number: US-002147023-NVSC2024US226811

PATIENT
  Sex: Male

DRUGS (1)
  1. PLUVICTO [Suspect]
     Active Substance: LUTETIUM LU-177 VIPIVOTIDE TETRAXETAN
     Indication: Neoplasm malignant
     Dosage: UNK (3 MONTHS), (ROUTE:INJECTION)
     Route: 050
     Dates: start: 20240829

REACTIONS (5)
  - Transient ischaemic attack [Recovering/Resolving]
  - Paraesthesia [Recovering/Resolving]
  - Vertigo [Recovering/Resolving]
  - Dizziness [Recovering/Resolving]
  - Drug ineffective [Unknown]
